FAERS Safety Report 21337046 (Version 7)
Quarter: 2024Q1

REPORT INFORMATION
  Report Type: Spontaneous
  Country: US (occurrence: US)
  Receive Date: 20220915
  Receipt Date: 20240207
  Transmission Date: 20240410
  Serious: Yes (Death, Hospitalization, Other)
  Sender: FDA-Public Use
  Company Number: US-PFIZER INC-202201159519

PATIENT
  Age: 73 Year
  Sex: Male
  Weight: 70.31 kg

DRUGS (1)
  1. VYNDAMAX [Suspect]
     Active Substance: TAFAMIDIS
     Indication: Amyloidosis
     Dosage: 61 MG, DAILY
     Dates: start: 201904

REACTIONS (4)
  - Cardiac failure congestive [Fatal]
  - Disease progression [Fatal]
  - Cardiac disorder [Unknown]
  - Illness [Unknown]
